FAERS Safety Report 4308777-0 (Version None)
Quarter: 2004Q1

REPORT INFORMATION
  Report Type: 
  Country: None (occurrence: None)
  Receive Date: 20040227
  Receipt Date: 20040223
  Transmission Date: 20041129
  Serious: Yes (Disabling)
  Sender: FDA-Public Use
  Company Number: 2004GB00464

PATIENT
  Age: 51 Year
  Sex: Female
  Weight: 66 kg

DRUGS (6)
  1. ARIMIDEX [Suspect]
     Indication: BREAST CANCER METASTATIC
     Dates: start: 20030601
  2. TAXOTERE [Suspect]
     Indication: BREAST CANCER METASTATIC
     Dosage: VARIED
     Dates: start: 20030401, end: 20030801
  3. VENLAFAXINE HCL [Concomitant]
  4. THYROXIN [Concomitant]
  5. ZOMETA [Concomitant]
  6. CLODRONIC ACID [Concomitant]

REACTIONS (3)
  - RETINAL ISCHAEMIA [None]
  - RETINAL VASCULAR DISORDER [None]
  - VITREOUS HAEMORRHAGE [None]
